FAERS Safety Report 7241152-8 (Version None)
Quarter: 2011Q1

REPORT INFORMATION
  Report Type: 
  Country: None (occurrence: None)
  Receive Date: 20110124
  Receipt Date: 20110110
  Transmission Date: 20110831
  Serious: Yes (Other)
  Sender: FDA-Public Use
  Company Number: US-ROCHE-455333

PATIENT
  Sex: Female
  Weight: 54.4 kg

DRUGS (2)
  1. BIRTH CONTROL PILLS NOS [Concomitant]
  2. ACCUTANE [Suspect]
     Indication: ACNE
     Route: 048
     Dates: start: 19930201, end: 19930601

REACTIONS (12)
  - EPISTAXIS [None]
  - DEPRESSION [None]
  - PSEUDOMEMBRANOUS COLITIS [None]
  - GASTROINTESTINAL INJURY [None]
  - GASTROINTESTINAL INFLAMMATION [None]
  - IRRITABLE BOWEL SYNDROME [None]
  - ANXIETY [None]
  - INFLAMMATORY BOWEL DISEASE [None]
  - ULCER [None]
  - INTESTINAL HAEMORRHAGE [None]
  - COLITIS ULCERATIVE [None]
  - RECTAL ABSCESS [None]
